FAERS Safety Report 6900975-2 (Version None)
Quarter: 2010Q3

REPORT INFORMATION
  Report Type: 
  Country: None (occurrence: None)
  Receive Date: 20100803
  Receipt Date: 20100723
  Transmission Date: 20110219
  Serious: Yes (Hospitalization, Disabling, Other)
  Sender: FDA-Public Use
  Company Number: B0599144A

PATIENT
  Sex: Female
  Weight: 44 kg

DRUGS (17)
  1. ALKERAN [Suspect]
     Dosage: 122MG PER DAY
     Route: 042
     Dates: start: 20080707, end: 20080708
  2. FLUDARA [Suspect]
     Indication: PREMEDICATION
     Dosage: 33MG PER DAY
     Route: 042
     Dates: start: 20080704, end: 20080708
  3. FIRSTCIN [Suspect]
     Indication: INFECTION
     Dosage: 4MG PER DAY
     Route: 042
     Dates: start: 20100705, end: 20100710
  4. GLEEVEC [Suspect]
     Dosage: 600MG PER DAY
     Route: 048
     Dates: start: 20080707, end: 20080714
  5. TACROLIMUS [Concomitant]
     Indication: PROPHYLAXIS AGAINST TRANSPLANT REJECTION
  6. MYCOPHENOLATE MOFETIL [Concomitant]
  7. KYTRIL [Concomitant]
     Indication: NAUSEA
     Dosage: 6MG PER DAY
     Route: 042
     Dates: start: 20080704, end: 20080708
  8. UNKNOWN [Concomitant]
     Indication: INFECTION
     Dosage: 4MG PER DAY
     Route: 042
     Dates: start: 20080705, end: 20080710
  9. GASTER [Concomitant]
     Route: 065
  10. VFEND [Concomitant]
     Route: 065
  11. FUROSEMIDE [Concomitant]
     Route: 065
  12. URSO 250 [Concomitant]
     Route: 048
  13. ARTIST [Concomitant]
     Route: 048
  14. PROMAC [Concomitant]
     Route: 048
  15. RENIVACE [Concomitant]
     Route: 048
  16. ALDACTONE [Concomitant]
     Route: 048
  17. EPADEL [Concomitant]
     Route: 048

REACTIONS (15)
  - ABDOMINAL PAIN UPPER [None]
  - BLOOD ALBUMIN DECREASED [None]
  - C-REACTIVE PROTEIN INCREASED [None]
  - COAGULATION TEST ABNORMAL [None]
  - CONDITION AGGRAVATED [None]
  - DISSEMINATED INTRAVASCULAR COAGULATION [None]
  - FIBRIN DEGRADATION PRODUCTS INCREASED [None]
  - HAEMOGLOBIN DECREASED [None]
  - PLATELET COUNT DECREASED [None]
  - PLEURAL EFFUSION [None]
  - PROTEIN TOTAL DECREASED [None]
  - TENDERNESS [None]
  - VENOOCCLUSIVE LIVER DISEASE [None]
  - WEIGHT INCREASED [None]
  - WHITE BLOOD CELL COUNT DECREASED [None]
